FAERS Safety Report 4598384-7 (Version None)
Quarter: 2005Q1

REPORT INFORMATION
  Report Type: 
  Country: None (occurrence: None)
  Receive Date: 20050304
  Receipt Date: 20050228
  Transmission Date: 20050727
  Serious: Yes (Hospitalization)
  Sender: FDA-Public Use
  Company Number: US-KINGPHARMUSA00001-K200500283

PATIENT
  Age: 63 Year
  Sex: Male

DRUGS (12)
  1. ALTACE [Suspect]
  2. DILTIAZEM HYDROCHLORIDE [Suspect]
     Dates: end: 20040222
  3. LASIX [Suspect]
  4. ATENOLOL [Suspect]
     Indication: ESSENTIAL HYPERTENSION
     Dates: start: 20040222
  5. PRAZOSIN HCL [Suspect]
  6. CYCLOSPORINE [Concomitant]
  7. PREDNISOLONE [Concomitant]
  8. MYCOPHENOLATE [Concomitant]
  9. CALCIUM CARBONATE [Concomitant]
  10. POTASSIUM CHLORIDE [Concomitant]
  11. CALCITRIOL [Concomitant]
  12. VALACYCLOVIR HCL [Concomitant]

REACTIONS (4)
  - BLOOD PRESSURE IMMEASURABLE [None]
  - BRADYCARDIA [None]
  - HYPOTENSION [None]
  - SHOCK [None]
